FAERS Safety Report 4980375-5 (Version None)
Quarter: 2006Q2

REPORT INFORMATION
  Report Type: 
  Country: None (occurrence: None)
  Receive Date: 20060421
  Receipt Date: 20060421
  Transmission Date: 20061013
  Serious: Yes (Life-Threatening, Hospitalization)
  Sender: FDA-Public Use
  Company Number: None

PATIENT
  Age: 52 Year
  Sex: Female
  Weight: 71.6683 kg

DRUGS (1)
  1. ABILIFY [Suspect]
     Indication: SCHIZOPHRENIA
     Dosage: 15MG   DAILY   PO
     Route: 048

REACTIONS (4)
  - GROIN ABSCESS [None]
  - LEUKOPENIA [None]
  - NEUTROPENIA [None]
  - STAPHYLOCOCCAL INFECTION [None]
